FAERS Safety Report 23242297 (Version 1)
Quarter: 2023Q4

REPORT INFORMATION
  Report Type: Other
  Country: CA (occurrence: CA)
  Receive Date: 20231129
  Receipt Date: 20231129
  Transmission Date: 20240110
  Serious: Yes (Hospitalization, Other)
  Sender: FDA-Public Use
  Company Number: CA-APOTEX-2023AP017235

PATIENT
  Age: 53 Year
  Sex: Male

DRUGS (8)
  1. LEVOFLOXACIN [Suspect]
     Active Substance: LEVOFLOXACIN
     Indication: Pneumonia
     Dosage: UNK
     Route: 065
  2. PIPERACILLIN AND TAZOBACTAM [Suspect]
     Active Substance: PIPERACILLIN SODIUM\TAZOBACTAM SODIUM
     Indication: Sepsis
     Dosage: UNK
     Route: 065
  3. ASPIRIN [Suspect]
     Active Substance: ASPIRIN
     Indication: Myocarditis
     Dosage: UNK
     Route: 065
  4. COLCHICINE [Suspect]
     Active Substance: COLCHICINE
     Indication: Myocarditis
     Dosage: UNK
     Route: 065
  5. OSELTAMIVIR [Suspect]
     Active Substance: OSELTAMIVIR
     Indication: Product used for unknown indication
     Dosage: UNK
     Route: 065
  6. VANCOMYCIN [Suspect]
     Active Substance: VANCOMYCIN
     Indication: Pneumonia staphylococcal
     Dosage: UNK
     Route: 065
  7. NOREPINEPHRINE [Suspect]
     Active Substance: NOREPINEPHRINE
     Indication: Blood pressure abnormal
     Dosage: UNK
     Route: 065
  8. FUROSEMIDE [Suspect]
     Active Substance: FUROSEMIDE
     Indication: Blood pressure abnormal
     Dosage: UNK
     Route: 065

REACTIONS (1)
  - Renal failure [Recovering/Resolving]
